FAERS Safety Report 7272097-5 (Version None)
Quarter: 2010Q4

REPORT INFORMATION
  Report Type: 
  Country: None (occurrence: None)
  Receive Date: 20101130
  Receipt Date: 20090818
  Transmission Date: 20110411
  Serious: Yes (Hospitalization)
  Sender: FDA-Public Use
  Company Number: 2008-178511-NL

PATIENT
  Age: 25 Year
  Sex: Female
  Weight: 63.5 kg

DRUGS (4)
  1. NUVARING [Suspect]
     Indication: CONTRACEPTION
     Dates: start: 20051001, end: 20071101
  2. NUVARING [Suspect]
     Indication: MENSTRUATION IRREGULAR
     Dates: start: 20051001, end: 20071101
  3. ORTHO TRI-CYCLEN [Concomitant]
  4. DICYCLOMINE [Concomitant]

REACTIONS (8)
  - DEPRESSION [None]
  - HEADACHE [None]
  - MOOD SWINGS [None]
  - OEDEMA PERIPHERAL [None]
  - PRURITUS [None]
  - PULMONARY EMBOLISM [None]
  - PULMONARY INFARCTION [None]
  - SWELLING [None]
